FAERS Safety Report 9239808 (Version 5)
Quarter: 2014Q1

REPORT INFORMATION
  Report Type: Spontaneous
  Country: FR (occurrence: FR)
  Receive Date: 20130418
  Receipt Date: 20140214
  Transmission Date: 20141002
  Serious: Yes (Hospitalization, Other)
  Sender: FDA-Public Use
  Company Number: FR-PFIZER INC-2013119794

PATIENT
  Age: 91 Year
  Sex: Male

DRUGS (17)
  1. CORDARONE [Suspect]
     Indication: ARRHYTHMIA
     Dosage: 200 MG, 1X/DAY
     Route: 048
     Dates: start: 20120619, end: 20120704
  2. TRIATEC [Suspect]
     Dosage: UNK
     Route: 048
     Dates: end: 20120622
  3. PROFENID [Suspect]
     Dosage: UNK
     Route: 048
     Dates: end: 20120622
  4. LOXEN [Suspect]
     Indication: HYPERTENSION
     Dosage: 50 MG, UNK
     Dates: end: 20120622
  5. LOXEN [Suspect]
     Dosage: 1 DF, 1X/DAY
     Route: 048
     Dates: end: 20120722
  6. APROVEL [Suspect]
     Indication: HYPERTENSION
     Dosage: 150 MG, 1X/DAY
     Route: 048
     Dates: start: 20120630, end: 20120704
  7. ESIDREX [Suspect]
     Indication: HYPERTENSION
     Dosage: 25 MG, UNK
     Dates: start: 20120630, end: 20120704
  8. EUPRESSYL [Suspect]
     Dosage: 60 MG, 1X/DAY
     Dates: start: 20120629, end: 20120704
  9. LERCAN [Suspect]
     Dosage: 10 MG, 1X/DAY
     Dates: start: 20120629, end: 20120704
  10. COAPROVEL [Suspect]
     Indication: HYPERTENSION
     Dosage: 1 DF (150 MG/ 12.5 MG), DAILY
     Route: 048
     Dates: start: 20120623, end: 20120629
  11. MONO-TILDIEM [Suspect]
     Indication: HYPERTENSION
     Dosage: 200 MG, 1X/DAY
     Route: 048
     Dates: start: 20120623, end: 20120629
  12. KARDEGIC [Concomitant]
     Indication: CARDIOVASCULAR EVENT PROPHYLAXIS
     Dosage: UNK
     Dates: start: 20120619, end: 20120704
  13. PARIET [Concomitant]
     Indication: CONSTIPATION
     Dosage: UNK
     Dates: start: 20120618, end: 20120711
  14. MICROLAX [Concomitant]
     Indication: CONSTIPATION
     Dosage: UNK
     Dates: start: 20120620, end: 20120711
  15. FORLAX [Concomitant]
     Indication: CONSTIPATION
     Dosage: UNK
     Dates: start: 20120629, end: 20120711
  16. TRANSIPEG [Concomitant]
     Indication: CONSTIPATION
     Dosage: UNK
     Dates: start: 20120620, end: 20120629
  17. EFFERALGAN CODEINE [Concomitant]
     Dosage: UNK
     Dates: start: 20120618, end: 20120629

REACTIONS (2)
  - Renal failure [Recovering/Resolving]
  - Bradycardia [Not Recovered/Not Resolved]
